FAERS Safety Report 14319459 (Version 1)
Quarter: 2017Q4

REPORT INFORMATION
  Report Type: Spontaneous
  Country: US (occurrence: US)
  Receive Date: 20171221
  Receipt Date: 20171221
  Transmission Date: 20180321
  Serious: No
  Sender: FDA-Public Use
  Company Number: None

PATIENT
  Age: 60 Year
  Sex: Female

DRUGS (1)
  1. XALKORI [Suspect]
     Active Substance: CRIZOTINIB
     Indication: LUNG NEOPLASM MALIGNANT
     Route: 048
     Dates: start: 20170418, end: 20170905

REACTIONS (4)
  - Visual impairment [None]
  - Presbyopia [None]
  - Therapy cessation [None]
  - Cataract [None]

NARRATIVE: CASE EVENT DATE: 20170608
